FAERS Safety Report 8829939 (Version 1)
Quarter: 2012Q4

REPORT INFORMATION
  Report Type: 
  Country: DE (occurrence: DE)
  Receive Date: 20121008
  Receipt Date: 20121008
  Transmission Date: 20130627
  Serious: Yes (Death, Hospitalization)
  Sender: FDA-Public Use
  Company Number: DE-ASTRAZENECA-2012SE76440

PATIENT
  Age: 74 Year
  Sex: Male
  Weight: 172 kg

DRUGS (1)
  1. MEROPENEM [Suspect]
     Indication: ABDOMINAL INFECTION
     Route: 042
     Dates: start: 20120629, end: 20120706

REACTIONS (3)
  - Pancreatitis [Fatal]
  - Multi-organ failure [Fatal]
  - Septic shock [Fatal]
